FAERS Safety Report 8943405 (Version 1)
Quarter: 2012Q4

REPORT INFORMATION
  Report Type: 
  Country: FR (occurrence: FR)
  Receive Date: 20121204
  Receipt Date: 20121204
  Transmission Date: 20130627
  Serious: Yes (Other)
  Sender: FDA-Public Use
  Company Number: FR-PFIZER INC-2012299904

PATIENT
  Age: 47 Year
  Sex: Female

DRUGS (8)
  1. ANSATIPINE [Suspect]
     Indication: PROPHYLAXIS
     Dosage: 300 mg, 2x/day
     Route: 048
     Dates: start: 20120723, end: 20121009
  2. ANSATIPINE [Interacting]
     Indication: MYCOBACTERIAL INFECTION
     Dosage: 300 mg, 1x/day
     Dates: start: 20121010, end: 20121025
  3. ZECLAR [Interacting]
     Indication: PROPHYLAXIS
     Dosage: 1000 mg, 1x/day
     Route: 048
     Dates: start: 20120723
  4. ZECLAR [Interacting]
     Indication: MYCOBACTERIAL INFECTION
  5. IZILOX [Suspect]
     Indication: PROPHYLAXIS
     Dosage: 400 mg, 1x/day
     Route: 048
     Dates: start: 20120723, end: 20121006
  6. IZILOX [Suspect]
     Indication: MYCOBACTERIAL INFECTION
     Dosage: 400 mg, 1x/day
     Route: 048
     Dates: start: 20121010, end: 20121019
  7. MYAMBUTOL [Suspect]
     Indication: PROPHYLAXIS
     Dosage: 3 DF, 1x/day
     Route: 048
     Dates: start: 20120723
  8. MYAMBUTOL [Suspect]
     Indication: MYCOBACTERIAL INFECTION

REACTIONS (4)
  - Overdose [Not Recovered/Not Resolved]
  - Drug interaction [Not Recovered/Not Resolved]
  - Arthralgia [Not Recovered/Not Resolved]
  - Gait disturbance [Not Recovered/Not Resolved]
